FAERS Safety Report 9669390 (Version 1)
Quarter: 2013Q4

REPORT INFORMATION
  Report Type: Spontaneous
  Country: US (occurrence: None)
  Receive Date: 20131104
  Receipt Date: 20131104
  Transmission Date: 20140711
  Serious: Yes (Hospitalization)
  Sender: FDA-Public Use
  Company Number: None

PATIENT
  Age: 75 Year
  Sex: Female
  Weight: 76.7 kg

DRUGS (1)
  1. TICAGRELOR [Suspect]
     Indication: CORONARY ARTERIAL STENT INSERTION
     Route: 048
     Dates: start: 20130826, end: 20131028

REACTIONS (5)
  - Large intestine polyp [None]
  - Rectal haemorrhage [None]
  - Haemoglobin decreased [None]
  - Haematochezia [None]
  - Refusal of treatment by patient [None]
